FAERS Safety Report 15500509 (Version 1)
Quarter: 2018Q4

REPORT INFORMATION
  Report Type: Spontaneous
  Country: US (occurrence: US)
  Receive Date: 20181015
  Receipt Date: 20181015
  Transmission Date: 20190205
  Serious: Yes (Hospitalization)
  Sender: FDA-Public Use
  Company Number: None

PATIENT
  Age: 19 Year
  Sex: Male

DRUGS (10)
  1. BACTRIM [Concomitant]
     Active Substance: SULFAMETHOXAZOLE\TRIMETHOPRIM
  2. BUDESONIDE. [Concomitant]
     Active Substance: BUDESONIDE
  3. CLONIDINE. [Concomitant]
     Active Substance: CLONIDINE
  4. FLUTICASONE. [Concomitant]
     Active Substance: FLUTICASONE
  5. SENNA [Concomitant]
     Active Substance: SENNA LEAF\SENNOSIDES\SENNOSIDES A AND B
  6. IPRATROPIUM [Concomitant]
     Active Substance: IPRATROPIUM
  7. PHOS/NAK [Concomitant]
  8. PULMOZYME [Suspect]
     Active Substance: DORNASE ALFA
     Indication: TRACHEITIS
     Route: 055
     Dates: start: 20170328
  9. RANITIDINE. [Concomitant]
     Active Substance: RANITIDINE
  10. SODIUM CHLOR [Concomitant]
     Active Substance: SODIUM CHLORIDE

REACTIONS (1)
  - Hospitalisation [None]

NARRATIVE: CASE EVENT DATE: 20181015
